FAERS Safety Report 5499542-X (Version None)
Quarter: 2007Q4

REPORT INFORMATION
  Report Type: 
  Country: None (occurrence: None)
  Receive Date: 20071026
  Receipt Date: 20071017
  Transmission Date: 20080405
  Serious: Yes (Other)
  Sender: FDA-Public Use
  Company Number: US-SHR-US-2007-039487

PATIENT
  Age: 39 Year
  Sex: Female

DRUGS (2)
  1. BETASERON [Suspect]
     Dosage: 8 MIU, EVERY 2D
     Route: 058
     Dates: start: 20050112
  2. ANTIDEPRESSANTS [Suspect]
     Indication: DEPRESSION
     Route: 048

REACTIONS (6)
  - CHOLELITHIASIS [None]
  - DEPRESSION [None]
  - DEPRESSION SUICIDAL [None]
  - DRUG DOSE OMISSION [None]
  - STOMACH MASS [None]
  - UTERINE LEIOMYOMA [None]
